FAERS Safety Report 9964965 (Version 1)
Quarter: 2014Q1

REPORT INFORMATION
  Report Type: Report from Study
  Country: US (occurrence: US)
  Receive Date: 20140305
  Receipt Date: 20140305
  Transmission Date: 20141002
  Serious: No
  Sender: FDA-Public Use
  Company Number: US-ABBVIE-13P-163-1128220-00

PATIENT
  Age: 29 Year
  Sex: Female

DRUGS (3)
  1. HUMIRA [Suspect]
     Indication: CROHN^S DISEASE
     Dosage: LAST INJECTION ON 11 JUN 2013
     Dates: start: 20130528
  2. PENTASA [Concomitant]
     Indication: CROHN^S DISEASE
     Dates: start: 2013
  3. PREDNISONE [Concomitant]
     Indication: INFLAMMATION
     Dates: start: 2013

REACTIONS (1)
  - Herpes zoster [Recovered/Resolved]
